FAERS Safety Report 14559635 (Version 2)
Quarter: 2018Q1

REPORT INFORMATION
  Report Type: Spontaneous
  Country: GB (occurrence: GB)
  Receive Date: 20180221
  Receipt Date: 20180305
  Transmission Date: 20180509
  Serious: Yes (Other)
  Sender: FDA-Public Use
  Company Number: GB-SA-2018SA042816

PATIENT
  Sex: Female

DRUGS (1)
  1. STILNOCT [Suspect]
     Active Substance: ZOLPIDEM TARTRATE
     Indication: INSOMNIA
     Dosage: SHE HAD 10MG TABLETS BUT SHE TOOK 5 SOMETIMES AND EVEN AT TIMES SHE TOOK 2.5MG.
     Route: 048

REACTIONS (6)
  - Dry eye [Unknown]
  - Eye disorder [Unknown]
  - Off label use [Unknown]
  - Eye pain [Unknown]
  - Angle closure glaucoma [Unknown]
  - Intentional product misuse [Unknown]
